FAERS Safety Report 10048831 (Version 1)
Quarter: 2014Q1

REPORT INFORMATION
  Report Type: Spontaneous
  Country: IT (occurrence: IT)
  Receive Date: 20140331
  Receipt Date: 20140331
  Transmission Date: 20141002
  Serious: Yes (Hospitalization)
  Sender: FDA-Public Use
  Company Number: PHHY2014IT035474

PATIENT
  Age: 22 Year
  Sex: Female

DRUGS (7)
  1. URSODEOXYCHOLIC ACID [Suspect]
     Dates: start: 20140204, end: 20140204
  2. PANTOPRAZOLE [Suspect]
     Dates: start: 20140204, end: 20140204
  3. DELORAZEPAM [Suspect]
     Dates: start: 20140204, end: 20140204
  4. OLANZAPINE [Suspect]
     Dates: start: 20140204, end: 20140204
  5. VALDORM [Suspect]
     Dosage: 1 DF, ONCE/SINGLE
     Route: 048
     Dates: start: 20140204, end: 20140204
  6. PLASIL [Suspect]
     Dates: start: 20140204, end: 20140204
  7. SEREUPIN [Suspect]
     Dates: start: 20140204, end: 20140204

REACTIONS (4)
  - Disorientation [Recovering/Resolving]
  - Eyelid oedema [Recovering/Resolving]
  - Suicide attempt [Recovering/Resolving]
  - Sopor [Recovering/Resolving]
